FAERS Safety Report 20423216 (Version 2)
Quarter: 2022Q1

REPORT INFORMATION
  Report Type: Report from Study
  Country: CH (occurrence: CH)
  Receive Date: 20220203
  Receipt Date: 20220216
  Transmission Date: 20220423
  Serious: Yes (Hospitalization)
  Sender: FDA-Public Use
  Company Number: CH-SEATTLE GENETICS-2022SGN00528

PATIENT
  Age: 79 Year
  Sex: Male
  Weight: 75.7 kg

DRUGS (14)
  1. BRENTUXIMAB VEDOTIN [Suspect]
     Active Substance: BRENTUXIMAB VEDOTIN
     Indication: B-cell lymphoma recurrent
     Dosage: 1.2 MG/KG, DAY 1 OF EACH 21-DAY CYCLE
     Route: 042
     Dates: start: 20211006, end: 20211228
  2. RITUXIMAB [Suspect]
     Active Substance: RITUXIMAB
     Indication: B-cell lymphoma recurrent
     Dosage: 375 MG/M2 ON CYCLE 1, DAY 1 OF EVERY 3 WEEKS CYCLE
     Route: 042
     Dates: start: 20211006, end: 20211228
  3. LENALIDOMIDE [Suspect]
     Active Substance: LENALIDOMIDE
     Indication: B-cell lymphoma recurrent
     Dosage: 10 MG, QD
     Route: 048
     Dates: start: 20211006, end: 20220116
  4. PRAMIPEXOLE DIHYDROCHLORIDE [Concomitant]
     Active Substance: PRAMIPEXOLE DIHYDROCHLORIDE
     Indication: Parkinsonism
     Dosage: 3 MG
     Route: 065
     Dates: start: 20211207
  5. PRAMIPEXOLE DIHYDROCHLORIDE [Concomitant]
     Active Substance: PRAMIPEXOLE DIHYDROCHLORIDE
     Dosage: 1 MG
     Route: 065
     Dates: end: 20211207
  6. HUMAN RED BLOOD CELL [Concomitant]
     Active Substance: HUMAN RED BLOOD CELL
     Indication: Anaemia
     Dosage: UNK
     Route: 065
     Dates: start: 20211220, end: 20211220
  7. HUMAN RED BLOOD CELL [Concomitant]
     Active Substance: HUMAN RED BLOOD CELL
     Indication: Neutrophil count decreased
     Dosage: UNK
     Route: 065
     Dates: start: 20211228, end: 20211228
  8. HUMAN RED BLOOD CELL [Concomitant]
     Active Substance: HUMAN RED BLOOD CELL
     Dosage: UNK
     Route: 065
     Dates: start: 20220118, end: 20220118
  9. ASPIRIN [Concomitant]
     Active Substance: ASPIRIN
     Indication: Prophylaxis
     Dosage: 100 MG
     Route: 065
     Dates: start: 20211006
  10. BACTRIM [Concomitant]
     Active Substance: SULFAMETHOXAZOLE\TRIMETHOPRIM
     Indication: Prophylaxis
     Dosage: 800/160 MG
     Route: 065
     Dates: start: 20211006
  11. LOPERAMIDE [Concomitant]
     Active Substance: LOPERAMIDE
     Indication: Diarrhoea
     Dosage: UNK
     Route: 065
     Dates: start: 20220117
  12. TERBINAX [Concomitant]
     Indication: Fungal infection
     Dosage: 250 MG
     Route: 065
     Dates: start: 20210919
  13. DUTASTERIDE\TAMSULOSIN [Concomitant]
     Active Substance: DUTASTERIDE\TAMSULOSIN
     Indication: Micturition disorder
     Dosage: 0.5MG/0.4MG
     Route: 065
  14. CARBIDOPA\LEVODOPA [Concomitant]
     Active Substance: CARBIDOPA\LEVODOPA
     Indication: Parkinsonism
     Dosage: 50/200MG
     Route: 065

REACTIONS (1)
  - General physical health deterioration [Recovered/Resolved with Sequelae]

NARRATIVE: CASE EVENT DATE: 20220127
